FAERS Safety Report 9331907 (Version 1)
Quarter: 2013Q2

REPORT INFORMATION
  Report Type: Spontaneous
  Country: GB (occurrence: None)
  Receive Date: 20130603
  Receipt Date: 20130603
  Transmission Date: 20140414
  Serious: Yes (Death)
  Sender: FDA-Public Use
  Company Number: GB-024482

PATIENT
  Age: 3 Year
  Sex: Male

DRUGS (16)
  1. BUSULFAN [Suspect]
     Indication: BONE MARROW FAILURE
     Route: 048
     Dates: start: 20110103, end: 20110106
  2. CYCLOPHOSPHAMIDE [Suspect]
     Indication: BONE MARROW FAILURE
     Route: 042
     Dates: start: 20110107, end: 20110110
  3. METHOTREXATE (METHOTREXATE) (UNKNOWN) [Suspect]
     Indication: GRAFT VERSUS HOST DISEASE
     Route: 042
     Dates: start: 20110116, end: 20110119
  4. ACICLOVIR (ACICLOVIR) [Concomitant]
  5. ALEMTUZUMAB (ALEMTUZUMAB) [Concomitant]
  6. ALLOPURINOL [Concomitant]
  7. CICLOSPORIN (CICLOSPORIN) [Concomitant]
  8. CIPROFLOXACIN (CIPROFLOXACIN) [Concomitant]
  9. ITRACONAZOLE (ITRACONAZOLE) [Concomitant]
  10. LANSOPRAZOLE (LANSOPRAZOLE) [Concomitant]
  11. MESNA (MESNA) [Concomitant]
  12. (ONDANSETRON) (ONDANSETRON) [Concomitant]
  13. PENTAMIDINE (PENTAMIDINE ISETHIONATE) [Concomitant]
  14. PHENYTOIN (PHENYTOIN) [Concomitant]
  15. THIOTEPA (THIOTEPA) [Concomitant]
  16. VITAMIN K (VITAMIN K) [Concomitant]

REACTIONS (1)
  - Venoocclusive liver disease [None]
